FAERS Safety Report 7310479-3 (Version None)
Quarter: 2011Q1

REPORT INFORMATION
  Report Type: 
  Country: None (occurrence: None)
  Receive Date: 20110224
  Receipt Date: 20101005
  Transmission Date: 20110831
  Serious: No
  Sender: FDA-Public Use
  Company Number: US-BRISTOL-MYERS SQUIBB COMPANY-15318298

PATIENT
  Sex: Female

DRUGS (2)
  1. JANUVIA [Concomitant]
  2. METFORMIN HCL [Suspect]
     Dosage: ONGOING

REACTIONS (2)
  - WEIGHT DECREASED [None]
  - DECREASED APPETITE [None]
